FAERS Safety Report 8512557-X (Version None)
Quarter: 2012Q3

REPORT INFORMATION
  Report Type: 
  Country: None (occurrence: None)
  Receive Date: 20120716
  Receipt Date: 20120709
  Transmission Date: 20120928
  Serious: Yes (Death, Hospitalization, Other)
  Sender: FDA-Public Use
  Company Number: US-CELGENEUS-163-21880-12052092

PATIENT
  Sex: Male
  Weight: 111.23 kg

DRUGS (20)
  1. LEVEMIR [Concomitant]
     Route: 050
  2. TEMAZEPAM [Concomitant]
     Route: 065
  3. ATIVAN [Concomitant]
     Route: 065
  4. METOLAZONE [Concomitant]
     Route: 065
  5. NUCYNTA [Concomitant]
     Route: 065
  6. PROTONIX [Concomitant]
     Route: 065
  7. NEURONTIN [Concomitant]
     Route: 065
  8. OXYCODONE HCL [Concomitant]
     Route: 065
  9. LEUKINE [Concomitant]
     Route: 050
  10. NOVOLOG [Concomitant]
     Route: 065
  11. METOPROLOL TARTRATE [Concomitant]
     Route: 065
  12. PREDNISONE [Concomitant]
     Route: 065
  13. CARAFATE [Concomitant]
     Route: 065
  14. POTASSIUM CHLORIDE [Concomitant]
     Route: 065
  15. RANITIDINE [Concomitant]
     Route: 065
  16. XARELTO [Concomitant]
     Route: 065
  17. REVLIMID [Suspect]
     Indication: NON-HODGKIN'S LYMPHOMA STAGE IV
     Dosage: 10 MILLIGRAM
     Route: 048
     Dates: start: 20120316
  18. COMPAZINE [Concomitant]
     Route: 065
  19. LEVOTHYROXINE SODIUM [Concomitant]
     Route: 065
  20. REGLAN [Concomitant]
     Route: 065

REACTIONS (1)
  - WHITE BLOOD CELL COUNT DECREASED [None]
